FAERS Safety Report 18145890 (Version 2)
Quarter: 2021Q1

REPORT INFORMATION
  Report Type: Report from Study
  Country: GB (occurrence: GB)
  Receive Date: 20200813
  Receipt Date: 20210220
  Transmission Date: 20210419
  Serious: Yes (Other)
  Sender: FDA-Public Use
  Company Number: NVSC2020GB222076

PATIENT
  Sex: Female

DRUGS (1)
  1. ERELZI [Suspect]
     Active Substance: ETANERCEPT-SZZS
     Indication: RHEUMATOID ARTHRITIS
     Dosage: 50 MG, QW
     Route: 058

REACTIONS (10)
  - Depressed mood [Not Recovered/Not Resolved]
  - Lower respiratory tract infection [Unknown]
  - Dysphagia [Unknown]
  - Poor quality sleep [Not Recovered/Not Resolved]
  - Product dose omission issue [Unknown]
  - Thyroid mass [Unknown]
  - Dyspnoea [Unknown]
  - Injection site pain [Unknown]
  - Fatigue [Unknown]
  - Psychiatric symptom [Unknown]
